FAERS Safety Report 19521395 (Version 1)
Quarter: 2021Q3

REPORT INFORMATION
  Report Type: Report from Study
  Country: US (occurrence: US)
  Receive Date: 20210712
  Receipt Date: 20210712
  Transmission Date: 20211014
  Serious: Yes (Other)
  Sender: FDA-Public Use
  Company Number: US-JNJFOC-20210706367

PATIENT
  Age: 28 Year
  Sex: Female

DRUGS (2)
  1. SPRAVATO [Suspect]
     Active Substance: ESKETAMINE
     Indication: PRODUCT USED FOR UNKNOWN INDICATION
     Dosage: 8 TOTAL DOSES
     Dates: start: 20201116, end: 20201208
  2. SPRAVATO [Suspect]
     Active Substance: ESKETAMINE
     Dosage: 11 TOTAL DOSES
     Dates: start: 20201214, end: 20210322

REACTIONS (1)
  - Seizure [Unknown]
